FAERS Safety Report 12282727 (Version 1)
Quarter: 2016Q2

REPORT INFORMATION
  Report Type: Spontaneous
  Country: NO (occurrence: NO)
  Receive Date: 20160419
  Receipt Date: 20160419
  Transmission Date: 20160815
  Serious: Yes (Other)
  Sender: FDA-Public Use
  Company Number: NO-ROXANE LABORATORIES, INC.-2016-RO-00667RO

PATIENT
  Age: 17 Year
  Sex: Female

DRUGS (1)
  1. SERTRALINE [Suspect]
     Active Substance: SERTRALINE HYDROCHLORIDE
     Indication: OBSESSIVE-COMPULSIVE DISORDER
     Route: 065

REACTIONS (5)
  - Nausea [Unknown]
  - Increased appetite [Unknown]
  - Anxiety [Unknown]
  - Tension [Unknown]
  - Abdominal pain upper [Unknown]
